FAERS Safety Report 21993685 (Version 2)
Quarter: 2023Q1

REPORT INFORMATION
  Report Type: Spontaneous
  Country: US (occurrence: None)
  Receive Date: 20230215
  Receipt Date: 20230216
  Transmission Date: 20230417
  Serious: Yes (Other)
  Sender: FDA-Public Use
  Company Number: US-ROCHE-3285938

PATIENT
  Sex: Female
  Weight: 38 kg

DRUGS (10)
  1. MYCOPHENOLATE MOFETIL [Suspect]
     Active Substance: MYCOPHENOLATE MOFETIL
     Indication: Juvenile idiopathic arthritis
     Route: 065
  2. MYCOPHENOLATE MOFETIL [Suspect]
     Active Substance: MYCOPHENOLATE MOFETIL
     Indication: Systemic scleroderma
  3. MYCOPHENOLATE MOFETIL [Suspect]
     Active Substance: MYCOPHENOLATE MOFETIL
     Indication: Polymyositis
  4. METHOTREXATE [Concomitant]
     Active Substance: METHOTREXATE
     Indication: Juvenile idiopathic arthritis
     Dosage: DISCONTINUED DUE TO XELJANZ STARTED ACTIVE CALCINOSIS, END DATE (SEP/2023)
     Dates: start: 201806
  5. PAMIDRONATE [Concomitant]
     Active Substance: PAMIDRONATE DISODIUM
     Indication: Juvenile idiopathic arthritis
  6. SODIUM THIOSULFATE [Concomitant]
     Active Substance: SODIUM THIOSULFATE
     Indication: Juvenile idiopathic arthritis
  7. COLCHICINE [Concomitant]
     Active Substance: COLCHICINE
     Indication: Juvenile idiopathic arthritis
  8. REMICADE [Concomitant]
     Active Substance: INFLIXIMAB
     Dosage: DISCONTINUED DUE TO ANAPHYLAXIS
     Dates: start: 202110, end: 202201
  9. XELJANZ [Concomitant]
     Active Substance: TOFACITINIB CITRATE
     Indication: Calcinosis
     Dosage: 12 BOTTLES OF ORAL SOLUTION 1 MG/ML
  10. XELJANZ [Concomitant]
     Active Substance: TOFACITINIB CITRATE
     Indication: Juvenile idiopathic arthritis

REACTIONS (2)
  - Anaphylactic reaction [Unknown]
  - Off label use [Unknown]
